FAERS Safety Report 7762698-X (Version None)
Quarter: 2011Q3

REPORT INFORMATION
  Report Type: 
  Country: None (occurrence: None)
  Receive Date: 20110920
  Receipt Date: 20110914
  Transmission Date: 20111222
  Serious: Yes (Other)
  Sender: FDA-Public Use
  Company Number: DK-PFIZER INC-2006077129

PATIENT
  Sex: Male

DRUGS (5)
  1. ZOLOFT [Suspect]
     Indication: DEPRESSION
     Dosage: 50 MG, 1X/DAY
     Route: 064
     Dates: start: 19980101
  2. NASONEX [Concomitant]
     Dosage: UNK
     Route: 064
  3. ZITHROMAX [Suspect]
     Indication: UPPER RESPIRATORY TRACT INFECTION
     Dosage: 500 MG, 1X/DAY
     Route: 064
     Dates: start: 20030101, end: 20030101
  4. FOLIC ACID [Concomitant]
     Dosage: UNK
     Route: 064
  5. ACETAMINOPHEN [Concomitant]
     Dosage: UNK, ON DEMAND
     Route: 064

REACTIONS (2)
  - MATERNAL EXPOSURE DURING PREGNANCY [None]
  - CEREBRAL PALSY [None]
